FAERS Safety Report 24308303 (Version 1)
Quarter: 2024Q3

REPORT INFORMATION
  Report Type: Spontaneous
  Country: US (occurrence: US)
  Receive Date: 20240911
  Receipt Date: 20240911
  Transmission Date: 20241017
  Serious: No
  Sender: ROCHE
  Company Number: US-ROCHE-10000077987

PATIENT
  Age: 40 Year
  Sex: Male

DRUGS (2)
  1. HEMLIBRA [Suspect]
     Active Substance: EMICIZUMAB-KXWH
     Indication: Factor VIII deficiency
     Dosage: STRENGTH- 150MG/ML
     Route: 058
     Dates: start: 202208
  2. advate injection [Concomitant]
     Dosage: SUBSEQUENT DOSE OF DATE 02-SEP-2024
     Dates: start: 20240901

REACTIONS (3)
  - Haemorrhage [Unknown]
  - Swelling [Unknown]
  - Contusion [Unknown]

NARRATIVE: CASE EVENT DATE: 20240901
